FAERS Safety Report 9924774 (Version 1)
Quarter: 2014Q1

REPORT INFORMATION
  Report Type: Spontaneous
  Country: US (occurrence: None)
  Receive Date: 20140224
  Receipt Date: 20140224
  Transmission Date: 20141002
  Serious: Yes (Disabling)
  Sender: FDA-Public Use
  Company Number: None

PATIENT
  Age: 53 Year
  Sex: Male
  Weight: 74.84 kg

DRUGS (1)
  1. INFLIXIMAB [Suspect]
     Indication: ANKYLOSING SPONDYLITIS
     Dosage: 5 VIAL EVERY 6 WEEKS
     Route: 042
     Dates: start: 20130205, end: 20131120

REACTIONS (14)
  - Weight decreased [None]
  - Asthenia [None]
  - Mental disorder [None]
  - Night sweats [None]
  - Sweat discolouration [None]
  - Fatigue [None]
  - Muscular weakness [None]
  - Skin ulcer [None]
  - Wound secretion [None]
  - Purulence [None]
  - Pain [None]
  - Impaired healing [None]
  - Malaise [None]
  - Erythema [None]
